FAERS Safety Report 22961093 (Version 2)
Quarter: 2023Q4

REPORT INFORMATION
  Report Type: Spontaneous
  Country: RU (occurrence: RU)
  Receive Date: 20230920
  Receipt Date: 20231003
  Transmission Date: 20240110
  Serious: Yes (Other)
  Sender: FDA-Public Use
  Company Number: RU-002147023-NVSC2023RU199520

PATIENT

DRUGS (3)
  1. CERITINIB [Suspect]
     Active Substance: CERITINIB
     Indication: Neuroblastoma
     Dosage: UNK
     Route: 065
  2. CERITINIB [Suspect]
     Active Substance: CERITINIB
     Indication: Ganglioneuroblastoma
  3. DINUTUXIMAB BETA [Concomitant]
     Active Substance: DINUTUXIMAB BETA
     Indication: Product used for unknown indication
     Dosage: UNK
     Route: 065

REACTIONS (2)
  - Hepatotoxicity [Recovered/Resolved]
  - Product use in unapproved indication [Unknown]
